FAERS Safety Report 19914487 (Version 2)
Quarter: 2022Q2

REPORT INFORMATION
  Report Type: Report from Study
  Country: EG (occurrence: EG)
  Receive Date: 20211004
  Receipt Date: 20220513
  Transmission Date: 20220721
  Serious: Yes (Hospitalization, Other)
  Sender: FDA-Public Use
  Company Number: EG-NOVARTISPH-NVSC2021EG221137

PATIENT
  Age: 53 Year
  Sex: Male

DRUGS (14)
  1. ENTRESTO [Suspect]
     Active Substance: SACUBITRIL\VALSARTAN
     Indication: Cardiac failure
     Dosage: 1 DOSAGE FORM, QD (50)
     Route: 065
     Dates: start: 20190916, end: 202108
  2. ENTRESTO [Suspect]
     Active Substance: SACUBITRIL\VALSARTAN
     Dosage: UNK
     Route: 065
  3. ENTRESTO [Suspect]
     Active Substance: SACUBITRIL\VALSARTAN
     Dosage: 1 DOSAGE FORM, QD (50 MG)
     Route: 065
     Dates: start: 20190916, end: 20220216
  4. ENTRESTO [Suspect]
     Active Substance: SACUBITRIL\VALSARTAN
     Dosage: 2 DOSAGE FORM, QD (50 MG)
     Route: 065
     Dates: start: 20220216, end: 20220507
  5. ENTRESTO [Suspect]
     Active Substance: SACUBITRIL\VALSARTAN
     Dosage: 1 DOSAGE FORM, QD (100 MG)
     Route: 065
     Dates: start: 20220507
  6. WARFARIN SODIUM [Concomitant]
     Active Substance: WARFARIN SODIUM
     Indication: Coagulopathy
     Dosage: 1 G, TID
     Route: 065
  7. WARFARIN SODIUM [Concomitant]
     Active Substance: WARFARIN SODIUM
     Dosage: 1 DOSAGE FORM, BID ( 1.5 MG ONE TABLET IN THE EVENING TWICE DAILY)
     Route: 048
     Dates: start: 20220301
  8. PROTOFIX [Concomitant]
     Indication: Product used for unknown indication
     Dosage: 1 DOSAGE FORM, QD (40 MG)
     Route: 048
     Dates: start: 20220301
  9. NEBIVOLOL HYDROCHLORIDE [Concomitant]
     Active Substance: NEBIVOLOL HYDROCHLORIDE
     Indication: Product used for unknown indication
     Dosage: 1 DOSAGE FORM, QD, ONE TABLET ONCE IN MORNING
     Route: 048
     Dates: start: 20220301
  10. CITICOLINE [Concomitant]
     Active Substance: CITICOLINE
     Indication: Product used for unknown indication
     Dosage: 30 MG, BID (DROPS)
     Route: 065
     Dates: start: 20220301
  11. STIMULAN [Concomitant]
     Indication: Product used for unknown indication
     Dosage: 1 DOSAGE FORM, BID
     Route: 048
     Dates: start: 20220301
  12. ASPIRIN [Concomitant]
     Active Substance: ASPIRIN
     Indication: Product used for unknown indication
     Dosage: 1 DOSAGE FORM, QD (AFTER LUNCH)
     Route: 048
     Dates: start: 20220301
  13. DONEPEZIL [Concomitant]
     Active Substance: DONEPEZIL
     Indication: Product used for unknown indication
     Dosage: 1 DOSAGE FORM, QD (5 MG AFTER LUNCH)
     Route: 048
     Dates: start: 20220301
  14. CRESTOR [Concomitant]
     Active Substance: ROSUVASTATIN CALCIUM
     Indication: Product used for unknown indication
     Dosage: 1 DOSAGE FORM, QD (20 MG ONE TABLET IN THE EVENING ONCE DAILY
     Route: 048
     Dates: start: 20220301

REACTIONS (14)
  - Loss of consciousness [Recovering/Resolving]
  - Coma [Recovering/Resolving]
  - Cerebrovascular accident [Recovering/Resolving]
  - Speech disorder [Recovering/Resolving]
  - Gait disturbance [Recovering/Resolving]
  - International normalised ratio increased [Recovering/Resolving]
  - Exercise tolerance decreased [Not Recovered/Not Resolved]
  - Ejection fraction decreased [Not Recovered/Not Resolved]
  - Blood pressure decreased [Not Recovered/Not Resolved]
  - Fatigue [Not Recovered/Not Resolved]
  - Mouth haemorrhage [Recovered/Resolved]
  - Inappropriate schedule of product administration [Recovered/Resolved]
  - Prescribed underdose [Unknown]
  - Wrong technique in product usage process [Recovered/Resolved]

NARRATIVE: CASE EVENT DATE: 20190916
